FAERS Safety Report 7589623-9 (Version None)
Quarter: 2011Q3

REPORT INFORMATION
  Report Type: 
  Country: None (occurrence: None)
  Receive Date: 20110705
  Receipt Date: 20110620
  Transmission Date: 20111222
  Serious: Yes (Other)
  Sender: FDA-Public Use
  Company Number: ES-WATSON-2011-09077

PATIENT
  Age: 64 Year
  Sex: Male

DRUGS (5)
  1. METFORMINA                         /00082701/ [Concomitant]
     Indication: DIABETES MELLITUS
     Dosage: 850 MG
     Route: 048
     Dates: start: 20110304
  2. TAMSULOSINA CINFA [Concomitant]
     Indication: PRODUCT USED FOR UNKNOWN INDICATION
     Dosage: 0.4 MG
     Route: 048
  3. TEBETANE COMPUESTO [Concomitant]
     Indication: BENIGN PROSTATIC HYPERPLASIA
     Dosage: Q12H
     Route: 048
     Dates: start: 20110329
  4. RAPAFLO [Suspect]
     Indication: BENIGN PROSTATIC HYPERPLASIA
     Dosage: 8 MG QD
     Route: 048
     Dates: start: 20110330, end: 20110518
  5. ASPIRIN [Concomitant]
     Indication: PRODUCT USED FOR UNKNOWN INDICATION
     Dosage: 100 MG
     Route: 048

REACTIONS (1)
  - ERECTILE DYSFUNCTION [None]
